FAERS Safety Report 8100216-7 (Version None)
Quarter: 2012Q1

REPORT INFORMATION
  Report Type: 
  Country: None (occurrence: None)
  Receive Date: 20120131
  Receipt Date: 20120124
  Transmission Date: 20120608
  Serious: Yes (Other)
  Sender: FDA-Public Use
  Company Number: JP-PFIZER INC-2011258454

PATIENT
  Age: 45 Year
  Sex: Female
  Weight: 64.1 kg

DRUGS (13)
  1. KETOPROFEN [Concomitant]
     Indication: ARTHRALGIA
     Dosage: 20 MG, 1X/DAY
     Dates: start: 20070911, end: 20071127
  2. THERADIA-C-PASTA [Concomitant]
     Indication: ARTERIOSCLEROSIS
     Dosage: 50 G, AS NEEDED
  3. ASPIRIN [Concomitant]
     Indication: THROMBOSIS PROPHYLAXIS
     Dosage: 100 MG, 1X/DAY
     Route: 048
     Dates: start: 20071127, end: 20110704
  4. FLOMOX [Concomitant]
     Indication: ARTERIOSCLEROSIS
     Dosage: 100 MG, 3X/DAY
     Route: 048
     Dates: start: 20090919, end: 20110923
  5. ANTEBATE [Concomitant]
     Indication: ECZEMA
     Dosage: 5 G, AS NEEDED
     Dates: start: 20090908, end: 20091013
  6. CEFDINIR [Concomitant]
     Indication: ARTERIOSCLEROSIS
     Dosage: 100 MG, 3X/DAY
     Dates: start: 20090108, end: 20090217
  7. RINDERON-VG [Concomitant]
     Indication: ARTERIOSCLEROSIS
     Dosage: 10 G, AS NEEDED
     Dates: start: 20090119, end: 20100212
  8. MEDROXYPROGESTERONE ACETATE [Suspect]
     Indication: ENDOMETRIAL CANCER
     Dosage: 200 MG, 2X/DAY
     Route: 048
     Dates: start: 20070807, end: 20110620
  9. METHYCOBAL [Concomitant]
     Indication: NEUROPATHY PERIPHERAL
     Dosage: 500 UG, 2X/DAY
     Route: 048
     Dates: start: 20070807
  10. PL [Concomitant]
     Indication: NASOPHARYNGITIS
     Dosage: 1 G, 3X/DAY
     Dates: start: 20090804, end: 20090809
  11. LOXONIN [Concomitant]
     Indication: ARTHRALGIA
     Dosage: 60 MG, AS NEEDED
     Route: 048
     Dates: start: 20071030
  12. GENTAMICIN SULFATE [Concomitant]
     Indication: ARTERIOSCLEROSIS
     Dosage: 10 G, AS NEEDED
     Dates: start: 20090108, end: 20100112
  13. MYSER [Concomitant]
     Indication: ARTERIOSCLEROSIS
     Dosage: 5 G, AS NEEDED
     Dates: start: 20090112, end: 20100119

REACTIONS (4)
  - OBESITY [None]
  - HEPATIC FUNCTION ABNORMAL [None]
  - HYPERLIPIDAEMIA [None]
  - DIABETES MELLITUS [None]
